FAERS Safety Report 16716443 (Version 2)
Quarter: 2019Q3

REPORT INFORMATION
  Report Type: Spontaneous
  Country: US (occurrence: US)
  Receive Date: 20190819
  Receipt Date: 20190828
  Transmission Date: 20191005
  Serious: No
  Sender: FDA-Public Use
  Company Number: US-CELGENEUS-USA-20190803904

PATIENT
  Sex: Female

DRUGS (6)
  1. OTEZLA [Suspect]
     Active Substance: APREMILAST
     Indication: PSORIATIC ARTHROPATHY
     Dosage: 10 MILLIGRAM
     Route: 048
     Dates: start: 20190716
  2. OTEZLA [Suspect]
     Active Substance: APREMILAST
     Dosage: 20 MILLIGRAM
     Route: 048
     Dates: start: 20190717
  3. OTEZLA [Suspect]
     Active Substance: APREMILAST
     Dosage: 60 MILLIGRAM
     Route: 048
     Dates: start: 20190721
  4. OTEZLA [Suspect]
     Active Substance: APREMILAST
     Dosage: 50 MILLIGRAM
     Route: 048
     Dates: start: 20190720
  5. OTEZLA [Suspect]
     Active Substance: APREMILAST
     Dosage: 40 MILLIGRAM
     Route: 048
     Dates: start: 20190719
  6. OTEZLA [Suspect]
     Active Substance: APREMILAST
     Dosage: 30 MILLIGRAM
     Route: 048
     Dates: start: 20190718

REACTIONS (2)
  - Peripheral swelling [Unknown]
  - Nausea [Unknown]

NARRATIVE: CASE EVENT DATE: 2019
